FAERS Safety Report 9028614 (Version 2)
Quarter: 2013Q1

REPORT INFORMATION
  Report Type: Spontaneous
  Country: US (occurrence: US)
  Receive Date: 20130124
  Receipt Date: 20130214
  Transmission Date: 20140127
  Serious: Yes (Other)
  Sender: FDA-Public Use
  Company Number: US-ASTRAZENECA-2012SE82466

PATIENT
  Age: 55 Year
  Sex: Female
  Weight: 76.2 kg

DRUGS (6)
  1. NEXIUM [Suspect]
     Indication: DYSPEPSIA
     Route: 048
  2. OTHER MEDICATIONS [Suspect]
     Indication: DYSPEPSIA
     Route: 065
  3. FAMOTIDINE [Concomitant]
     Indication: DYSPEPSIA
     Route: 048
  4. QUINAPRIL [Concomitant]
     Indication: HYPERTENSION
     Route: 048
  5. ADVAIR [Concomitant]
     Indication: ASTHMA
     Route: 055
  6. VENTOLIN HFA [Concomitant]
     Indication: ASTHMA
     Route: 055

REACTIONS (7)
  - Suicidal ideation [Unknown]
  - Sinus disorder [Unknown]
  - Thyroid disorder [Unknown]
  - Influenza [Unknown]
  - Abdominal pain [Unknown]
  - Depression [Unknown]
  - Malaise [Unknown]
